FAERS Safety Report 13346886 (Version 1)
Quarter: 2017Q1

REPORT INFORMATION
  Report Type: Spontaneous
  Country: US (occurrence: US)
  Receive Date: 20170317
  Receipt Date: 20170317
  Transmission Date: 20170428
  Serious: No
  Sender: FDA-Public Use
  Company Number: US-PERRIGO-16US018794

PATIENT
  Sex: Male

DRUGS (3)
  1. NICOTINE POLACRILEX [Suspect]
     Active Substance: NICOTINE
     Indication: SMOKING CESSATION THERAPY
     Dosage: UNKNOWN, UNKNOWN
     Route: 002
  2. NICOTINE POLACRILEX [Suspect]
     Active Substance: NICOTINE
     Indication: ACCIDENTAL EXPOSURE TO PRODUCT
     Dosage: UNKNOWN, SINGLE
     Route: 048
  3. NICOTINE POLACRILEX [Suspect]
     Active Substance: NICOTINE
     Dosage: UNKNOWN, SINGLE
     Route: 048
     Dates: start: 20160731, end: 20160731

REACTIONS (3)
  - Dyspepsia [Not Recovered/Not Resolved]
  - Incorrect route of drug administration [Recovered/Resolved]
  - Chest discomfort [Not Recovered/Not Resolved]

NARRATIVE: CASE EVENT DATE: 20160731
